FAERS Safety Report 16589865 (Version 1)
Quarter: 2019Q3

REPORT INFORMATION
  Report Type: Spontaneous
  Country: FR (occurrence: FR)
  Receive Date: 20190718
  Receipt Date: 20190718
  Transmission Date: 20191004
  Serious: Yes (Disabling)
  Sender: FDA-Public Use
  Company Number: FR-TEVA-2019-FR-1078053

PATIENT
  Age: 71 Year
  Sex: Female

DRUGS (6)
  1. VESICARE [Concomitant]
     Active Substance: SOLIFENACIN SUCCINATE
  2. DAFLON [Concomitant]
  3. CITRATE DE BETAINE MONOHYDRATE [Concomitant]
  4. DAFALGAN [Concomitant]
     Active Substance: ACETAMINOPHEN
  5. VALPROIC ACID. [Suspect]
     Active Substance: VALPROIC ACID
     Indication: EPILEPSY
     Dosage: 4 DOSAGE FORMS DAILY; 1.5 - 1 - 1.5
     Route: 048
     Dates: end: 201905
  6. FENOFIBRATE. [Concomitant]
     Active Substance: FENOFIBRATE

REACTIONS (5)
  - Alopecia [Recovering/Resolving]
  - Cognitive disorder [Recovering/Resolving]
  - Thrombocytopenia [Recovering/Resolving]
  - Anaemia macrocytic [Not Recovered/Not Resolved]
  - Fall [Recovering/Resolving]

NARRATIVE: CASE EVENT DATE: 20190523
